FAERS Safety Report 10132344 (Version 1)
Quarter: 2014Q2

REPORT INFORMATION
  Report Type: Spontaneous
  Country: US (occurrence: US)
  Receive Date: 20140428
  Receipt Date: 20140428
  Transmission Date: 20141212
  Serious: Yes (Other)
  Sender: FDA-Public Use
  Company Number: US-TEVA-477503USA

PATIENT
  Age: 49 Year
  Sex: Male

DRUGS (2)
  1. BUPROPION [Suspect]
     Indication: DRUG ABUSE
     Dosage: SNORTING 4-12 TABLETS PER DAY
     Route: 045
  2. BUPROPION [Suspect]
     Indication: DEPRESSION
     Route: 065

REACTIONS (3)
  - Drug abuse [Recovered/Resolved]
  - Intentional product misuse [Recovered/Resolved]
  - Hallucination [Recovered/Resolved]
